APPROVED DRUG PRODUCT: TINDAMAX
Active Ingredient: TINIDAZOLE
Strength: 250MG
Dosage Form/Route: TABLET;ORAL
Application: N021618 | Product #001 | TE Code: AB
Applicant: MISSION PHARMACAL CO
Approved: May 17, 2004 | RLD: Yes | RS: No | Type: RX